FAERS Safety Report 7103913-5 (Version None)
Quarter: 2010Q4

REPORT INFORMATION
  Report Type: 
  Country: None (occurrence: None)
  Receive Date: 20101115
  Receipt Date: 20100601
  Transmission Date: 20110411
  Serious: Yes (Other)
  Sender: FDA-Public Use
  Company Number: US-ALLERGAN-0916622US

PATIENT
  Age: 38 Year
  Sex: Female

DRUGS (1)
  1. BOTOX COSMETIC [Suspect]
     Indication: SKIN WRINKLING
     Dosage: 60 UNITS, SINGLE
     Route: 030
     Dates: start: 20091130, end: 20091130

REACTIONS (2)
  - MUSCULAR WEAKNESS [None]
  - VISION BLURRED [None]
